FAERS Safety Report 5033005-0 (Version None)
Quarter: 2006Q2

REPORT INFORMATION
  Report Type: 
  Country: None (occurrence: None)
  Receive Date: 20060511
  Receipt Date: 20060320
  Transmission Date: 20061013
  Serious: Yes (Other)
  Sender: FDA-Public Use
  Company Number: 200612768US

PATIENT
  Sex: Male

DRUGS (3)
  1. APIDRA [Suspect]
     Indication: DIABETES MELLITUS
     Dates: start: 20060317, end: 20060319
  2. ZANTAC [Concomitant]
  3. PSEUDOEPHEDRINE HYDROCHLORIDE, FEXOFENADINE (ALLEGRA-D) [Concomitant]

REACTIONS (5)
  - ANGIONEUROTIC OEDEMA [None]
  - DYSPNOEA [None]
  - INCREASED UPPER AIRWAY SECRETION [None]
  - PHARYNGEAL OEDEMA [None]
  - SWELLING FACE [None]
